FAERS Safety Report 5515756-4 (Version None)
Quarter: 2007Q4

REPORT INFORMATION
  Report Type: 
  Country: None (occurrence: None)
  Receive Date: 20071114
  Receipt Date: 20071108
  Transmission Date: 20080405
  Serious: Yes (Other)
  Sender: FDA-Public Use
  Company Number: PHEH2007US14638

PATIENT
  Sex: Female

DRUGS (1)
  1. EXFORGE [Suspect]
     Dosage: 10 MG/ 160 MG, UNK

REACTIONS (3)
  - INTRAOCULAR PRESSURE TEST ABNORMAL [None]
  - VISUAL ACUITY REDUCED [None]
  - VITREOUS FLOATERS [None]
